FAERS Safety Report 5032787-1 (Version None)
Quarter: 2006Q2

REPORT INFORMATION
  Report Type: 
  Country: None (occurrence: None)
  Receive Date: 20060620
  Receipt Date: 20060620
  Transmission Date: 20061013
  Serious: Yes (Other)
  Sender: FDA-Public Use
  Company Number: None

PATIENT
  Sex: Female
  Weight: 67.1324 kg

DRUGS (1)
  1. VALTREX [Suspect]
     Indication: PROPHYLAXIS
     Dosage: 500 MG DAILY
     Dates: start: 20040601, end: 20060619

REACTIONS (1)
  - HERPES SIMPLEX [None]
